FAERS Safety Report 13959583 (Version 3)
Quarter: 2017Q4

REPORT INFORMATION
  Report Type: Spontaneous
  Country: US (occurrence: US)
  Receive Date: 20170911
  Receipt Date: 20171017
  Transmission Date: 20180320
  Serious: No
  Sender: FDA-Public Use
  Company Number: US-ACTELION-A-NJ2017-159222

PATIENT
  Age: 36 Year
  Sex: Female

DRUGS (5)
  1. TARGRETIN [Concomitant]
     Active Substance: BEXAROTENE
     Dosage: UNK, QD
     Dates: start: 20170803
  2. BETAMETHASONE DIPROPIONATE. [Concomitant]
     Active Substance: BETAMETHASONE DIPROPIONATE
  3. VALCHLOR [Suspect]
     Active Substance: MECHLORETHAMINE
     Dosage: UNK, QOD
     Route: 061
  4. KENALOG [Concomitant]
     Active Substance: TRIAMCINOLONE ACETONIDE
     Dosage: UNK, SINGLE
     Route: 026
     Dates: start: 20170907, end: 20170907
  5. VALCHLOR [Suspect]
     Active Substance: MECHLORETHAMINE
     Indication: MYCOSIS FUNGOIDES
     Dosage: UNK
     Route: 061
     Dates: start: 20170811

REACTIONS (5)
  - Application site pruritus [Unknown]
  - Condition aggravated [Unknown]
  - Mycosis fungoides [Unknown]
  - Application site dryness [Unknown]
  - Application site pain [Recovered/Resolved]

NARRATIVE: CASE EVENT DATE: 20170814
